FAERS Safety Report 10817601 (Version 1)
Quarter: 2015Q1

REPORT INFORMATION
  Report Type: Report from Study
  Country: US (occurrence: US)
  Receive Date: 20150218
  Receipt Date: 20150218
  Transmission Date: 20150721
  Serious: No
  Sender: FDA-Public Use
  Company Number: US-ABBVIE-14K-163-1287503-00

PATIENT
  Age: 23 Year
  Sex: Female

DRUGS (7)
  1. HUMIRA [Suspect]
     Active Substance: ADALIMUMAB
     Indication: ANKYLOSING SPONDYLITIS
     Dates: start: 201211
  2. ADDERALL [Concomitant]
     Active Substance: AMPHETAMINE ASPARTATE\AMPHETAMINE SULFATE\DEXTROAMPHETAMINE SACCHARATE\DEXTROAMPHETAMINE SULFATE
     Indication: ATTENTION DEFICIT/HYPERACTIVITY DISORDER
     Route: 048
  3. LOESTRIN NOS [Concomitant]
     Active Substance: ETHINYL ESTRADIOL\NORETHINDRONE ACETATE
     Indication: CONTRACEPTION
     Route: 048
  4. ANTI MALARIAL MEDICATION [Concomitant]
     Indication: PRODUCT USED FOR UNKNOWN INDICATION
  5. ANTI FUNGAL MEDICATION [Concomitant]
     Indication: ONYCHOMYCOSIS
     Route: 048
  6. VYVANSE [Concomitant]
     Active Substance: LISDEXAMFETAMINE DIMESYLATE
     Indication: ATTENTION DEFICIT/HYPERACTIVITY DISORDER
     Route: 048
  7. SINGULAIR [Concomitant]
     Active Substance: MONTELUKAST SODIUM
     Indication: ASTHMA EXERCISE INDUCED
     Route: 048

REACTIONS (3)
  - Abdominal discomfort [Not Recovered/Not Resolved]
  - Hypophagia [Not Recovered/Not Resolved]
  - Oesophagitis [Unknown]

NARRATIVE: CASE EVENT DATE: 201408
